FAERS Safety Report 5451389-6 (Version None)
Quarter: 2007Q3

REPORT INFORMATION
  Report Type: 
  Country: None (occurrence: None)
  Receive Date: 20070911
  Receipt Date: 20070911
  Transmission Date: 20080115
  Serious: Yes (Hospitalization)
  Sender: FDA-Public Use
  Company Number: None

PATIENT
  Sex: Male

DRUGS (4)
  1. AVASTIN [Suspect]
     Indication: MALIGNANT FIBROUS HISTIOCYTOMA
     Dosage: 450MG/110MG/3300MG Q2 WEEKS IV
     Route: 042
  2. AVASTIN [Suspect]
     Indication: PERITONEAL DISORDER
     Dosage: 450MG/110MG/3300MG Q2 WEEKS IV
     Route: 042
  3. AVASTIN [Suspect]
     Indication: RENAL MASS
     Dosage: 450MG/110MG/3300MG Q2 WEEKS IV
     Route: 042
  4. DOCETAXEL [Suspect]

REACTIONS (3)
  - ANOREXIA [None]
  - LETHARGY [None]
  - PYELONEPHRITIS [None]
